FAERS Safety Report 24332685 (Version 1)
Quarter: 2024Q3

REPORT INFORMATION
  Report Type: Report from Study
  Country: KR (occurrence: KR)
  Receive Date: 20240918
  Receipt Date: 20240918
  Transmission Date: 20241017
  Serious: Yes (Other)
  Sender: NOVARTIS
  Company Number: KR-002147023-NVSC2024KR149365

PATIENT
  Age: 39 Year
  Sex: Female

DRUGS (12)
  1. ARCAPTA NEOHALER [Suspect]
     Active Substance: INDACATEROL MALEATE
     Indication: Asthma
     Dosage: UNK, QD (150/50/160 UG)
     Route: 055
     Dates: start: 20240401
  2. PREDNISOLONE [Concomitant]
     Active Substance: PREDNISOLONE
     Indication: Asthma
     Dosage: 20 MG, QD
     Route: 048
     Dates: start: 20240401, end: 20240405
  3. PREDNISOLONE [Concomitant]
     Active Substance: PREDNISOLONE
     Dosage: 15 MG, QD
     Route: 048
     Dates: start: 20240624, end: 20240628
  4. ROXITHROMYCIN [Concomitant]
     Active Substance: ROXITHROMYCIN
     Indication: Rhinitis allergic
     Dosage: 1 DOSAGE FORM, QD
     Route: 048
     Dates: start: 20240401, end: 20240407
  5. EBASTINE [Concomitant]
     Active Substance: EBASTINE
     Indication: Rhinitis allergic
     Dosage: 1 DOSAGE FORM, QD
     Route: 048
     Dates: start: 20240401, end: 20240818
  6. CUROST [Concomitant]
     Indication: Asthma
     Dosage: 10 MG, QD
     Route: 048
     Dates: start: 20240408, end: 20240818
  7. ALLEGRA [Concomitant]
     Active Substance: FEXOFENADINE HYDROCHLORIDE
     Indication: Food allergy
     Dosage: 120 MG, QD
     Route: 048
     Dates: start: 20240415, end: 20240514
  8. ALLEGRA-D [Concomitant]
     Active Substance: FEXOFENADINE HYDROCHLORIDE\PSEUDOEPHEDRINE HYDROCHLORIDE
     Indication: Food allergy
     Dosage: 120 MG, QD
     Route: 048
     Dates: start: 20240819
  9. PAZEO [Concomitant]
     Active Substance: OLOPATADINE HYDROCHLORIDE
     Indication: Food allergy
     Dosage: 1 DRP, QD (EXTERNAL)
     Route: 065
     Dates: start: 20240513, end: 20240818
  10. CITUS [Concomitant]
     Indication: Asthma
     Dosage: 50 MG, BID
     Route: 048
     Dates: start: 20240819
  11. LEVODROPROPIZINE [Concomitant]
     Active Substance: LEVODROPROPIZINE
     Indication: Rhinitis allergic
     Dosage: 1 DOSAGE FORM, BID
     Route: 048
     Dates: start: 20240819
  12. RINOEBASTEL [Concomitant]
     Indication: Rhinitis allergic
     Dosage: 1 DOSAGE FORM, QD
     Route: 048
     Dates: start: 20240819

REACTIONS (3)
  - Cystitis [Recovering/Resolving]
  - Food allergy [Recovering/Resolving]
  - Ventricular extrasystoles [Recovering/Resolving]

NARRATIVE: CASE EVENT DATE: 20240513
